FAERS Safety Report 5477807-5 (Version None)
Quarter: 2007Q4

REPORT INFORMATION
  Report Type: 
  Country: None (occurrence: None)
  Receive Date: 20071004
  Receipt Date: 20070928
  Transmission Date: 20080405
  Serious: Yes (Other)
  Sender: FDA-Public Use
  Company Number: US-SANOFI-SYNTHELABO-A03200705805

PATIENT
  Sex: Male
  Weight: 86.2 kg

DRUGS (5)
  1. ANTIDEPRESSANT [Concomitant]
     Indication: DEPRESSION
     Dosage: UNK
     Route: 065
     Dates: start: 20070801
  2. ACTOS [Concomitant]
     Indication: DIABETES MELLITUS
     Dosage: UNK
     Route: 065
  3. METFORMIN HCL [Concomitant]
     Indication: DIABETES MELLITUS
     Dosage: UNK
     Route: 065
  4. DIABETES MEDICATION [Concomitant]
     Indication: DIABETES MELLITUS
     Dosage: UNK
     Route: 065
  5. AMBIEN CR [Suspect]
     Indication: INSOMNIA
     Dosage: 1 DF HS AND ANOTHER 1 DF PRN IF HE WAKES UP
     Route: 048

REACTIONS (2)
  - DRUG INEFFECTIVE [None]
  - HYPOGLYCAEMIA [None]
